FAERS Safety Report 11078616 (Version 2)
Quarter: 2015Q2

REPORT INFORMATION
  Report Type: Report from Study
  Country: US (occurrence: US)
  Receive Date: 20150430
  Receipt Date: 20150526
  Transmission Date: 20150821
  Serious: Yes (Disabling, Other)
  Sender: FDA-Public Use
  Company Number: US-SA-2015SA030220

PATIENT
  Age: 61 Year
  Sex: Female

DRUGS (3)
  1. LEMTRADA [Suspect]
     Active Substance: ALEMTUZUMAB
     Indication: MULTIPLE SCLEROSIS
     Route: 041
     Dates: start: 20150302, end: 20150304
  2. LEMTRADA [Suspect]
     Active Substance: ALEMTUZUMAB
     Indication: MULTIPLE SCLEROSIS
     Route: 041
     Dates: start: 20150306, end: 20150306
  3. LEMTRADA [Suspect]
     Active Substance: ALEMTUZUMAB
     Indication: MULTIPLE SCLEROSIS
     Route: 041
     Dates: start: 20150309, end: 20150309

REACTIONS (7)
  - Gait disturbance [Unknown]
  - Disability [Unknown]
  - Mental impairment [Unknown]
  - Blood glucose increased [Unknown]
  - Pruritus [Unknown]
  - Rash papular [Unknown]
  - Fall [Unknown]

NARRATIVE: CASE EVENT DATE: 2015
